FAERS Safety Report 9171733 (Version 1)
Quarter: 2013Q1

REPORT INFORMATION
  Report Type: Spontaneous
  Country: US (occurrence: US)
  Receive Date: 20130319
  Receipt Date: 20130319
  Transmission Date: 20140127
  Serious: Yes (Other)
  Sender: FDA-Public Use
  Company Number: CHPA2013US004563

PATIENT
  Age: 75 Year
  Sex: Female

DRUGS (2)
  1. MYOFLEX ANALGESIC CREME [Suspect]
     Indication: PAIN
     Dosage: UNK
  2. MYOFLEX ANALGESIC CREME [Suspect]
     Indication: BURNING SENSATION
     Dosage: UNK, UNK
     Route: 061
     Dates: start: 20030312

REACTIONS (5)
  - Thrombosis [Recovered/Resolved]
  - Vascular injury [Unknown]
  - Pain [Unknown]
  - Therapeutic response unexpected [Unknown]
  - Off label use [Unknown]
